FAERS Safety Report 8372905-0 (Version None)
Quarter: 2012Q2

REPORT INFORMATION
  Report Type: 
  Country: None (occurrence: None)
  Receive Date: 20120521
  Receipt Date: 20120510
  Transmission Date: 20120825
  Serious: Yes (Hospitalization)
  Sender: FDA-Public Use
  Company Number: JP-VERTEX PHARMACEUTICALS INC.-AE-2012-006745

PATIENT
  Age: 65 Year
  Sex: Male

DRUGS (6)
  1. LASIX [Concomitant]
     Route: 048
     Dates: end: 20120501
  2. REBETOL [Concomitant]
     Indication: HEPATITIS C
     Route: 048
     Dates: start: 20120313, end: 20120404
  3. TELAVIC (TELAPREVIR) [Suspect]
     Indication: HEPATITIS C
     Route: 048
     Dates: start: 20120313, end: 20120404
  4. ALDACTONE [Concomitant]
     Route: 048
     Dates: end: 20120501
  5. CELESTAMINE TAB [Concomitant]
     Route: 048
     Dates: end: 20120425
  6. PEG-INTRON [Concomitant]
     Indication: HEPATITIS C
     Route: 051
     Dates: start: 20120313, end: 20120404

REACTIONS (1)
  - INTERSTITIAL LUNG DISEASE [None]
